FAERS Safety Report 9057480 (Version 1)
Quarter: 2013Q1

REPORT INFORMATION
  Report Type: Spontaneous
  Country: ES (occurrence: ES)
  Receive Date: 20130204
  Receipt Date: 20130204
  Transmission Date: 20140127
  Serious: Yes (Disabling, Other)
  Sender: FDA-Public Use
  Company Number: ES-ROXANE LABORATORIES, INC.-2013-RO-00183RO

PATIENT
  Age: 47 Year
  Sex: Female

DRUGS (18)
  1. METHOTREXATE [Suspect]
     Indication: PSORIATIC ARTHROPATHY
     Dates: start: 2007, end: 2007
  2. METHOTREXATE [Suspect]
     Dates: start: 201005, end: 201009
  3. METHOTREXATE [Suspect]
     Dates: start: 201104
  4. PREDNISONE [Suspect]
     Indication: PSORIATIC ARTHROPATHY
     Dosage: 5 MG
     Dates: start: 2007, end: 2007
  5. NAPROXEN [Suspect]
     Indication: ARTHRITIS
     Dosage: 1000 MG
     Dates: start: 201104
  6. ADALIMUMAB [Suspect]
     Indication: PSORIATIC ARTHROPATHY
     Dates: start: 201005, end: 201010
  7. PSORALEN [Suspect]
     Indication: PSORIASIS
     Dates: end: 201012
  8. PSORALEN [Suspect]
     Indication: PUSTULAR PSORIASIS
  9. CALCIPOTRIENE\BETAMETHASONE DIPROPRIONATE [Suspect]
     Indication: PSORIASIS
     Dates: end: 201012
  10. CALCIPOTRIENE/BETAMETHASONE DIPROPRIONATE [Suspect]
     Indication: PUSTULAR PSORIASIS
  11. ETANERCEPT [Suspect]
     Indication: PSORIASIS
     Dates: start: 201011, end: 201012
  12. ETANERCEPT [Suspect]
     Indication: PUSTULAR PSORIASIS
  13. CICLOSPORIN [Suspect]
     Dosage: 300 MG
  14. USTEKINUMAB [Suspect]
     Route: 058
     Dates: start: 201012
  15. ACITRETIN [Suspect]
     Dates: start: 201012
  16. METFORMIN [Concomitant]
     Indication: DIABETES MELLITUS
  17. ISONIAZIDE [Concomitant]
     Indication: PROPHYLACTIC CHEMOTHERAPY
     Dates: start: 201002
  18. ISONIAZIDE [Concomitant]
     Indication: TUBERCULIN TEST POSITIVE

REACTIONS (12)
  - Psoriasis [Recovered/Resolved]
  - Drug ineffective [Recovered/Resolved]
  - Hepatotoxicity [Unknown]
  - Pustular psoriasis [Recovered/Resolved]
  - Nail dystrophy [Recovered/Resolved]
  - Folliculitis [Recovered/Resolved]
  - Hyperkeratosis [Recovered/Resolved]
  - Alopecia [Recovered/Resolved]
  - Abdominal discomfort [Recovered/Resolved]
  - Arthritis [Recovered/Resolved]
  - Diffuse alopecia [Recovered/Resolved]
  - Costochondritis [Recovered/Resolved]
